FAERS Safety Report 8158068-5 (Version None)
Quarter: 2012Q1

REPORT INFORMATION
  Report Type: 
  Country: None (occurrence: None)
  Receive Date: 20120222
  Receipt Date: 20120216
  Transmission Date: 20120608
  Serious: Yes (Hospitalization)
  Sender: FDA-Public Use
  Company Number: US-MERCK-1112USA00931

PATIENT
  Age: 63 Year
  Sex: Female

DRUGS (4)
  1. NEXIUM [Concomitant]
     Indication: GASTROOESOPHAGEAL REFLUX DISEASE
     Route: 048
     Dates: start: 19990101
  2. LUMIGAN [Concomitant]
     Indication: GLAUCOMA
     Route: 048
     Dates: start: 19960101
  3. FOSAMAX [Suspect]
     Indication: OSTEOPOROSIS
     Route: 048
     Dates: start: 20010101, end: 20080301
  4. ALENDRONATE SODIUM [Suspect]
     Indication: OSTEOPOROSIS
     Route: 048

REACTIONS (7)
  - FALL [None]
  - HYPERTENSION [None]
  - FEMUR FRACTURE [None]
  - ORAL DISORDER [None]
  - WRIST FRACTURE [None]
  - ARTHRALGIA [None]
  - TOOTH DISORDER [None]
